FAERS Safety Report 4741796-9 (Version None)
Quarter: 2005Q3

REPORT INFORMATION
  Report Type: 
  Country: None (occurrence: None)
  Receive Date: 20050804
  Receipt Date: 20050606
  Transmission Date: 20060218
  Serious: Yes (Hospitalization)
  Sender: FDA-Public Use
  Company Number: WAES 0506USA01048

PATIENT

DRUGS (2)
  1. EMEND [Suspect]
     Dosage: 125 MG / 1X / PO
     Route: 048
  2. EMEND [Suspect]
     Dosage: 80 MG DAILY PO
     Route: 048

REACTIONS (1)
  - HEADACHE [None]
